FAERS Safety Report 19723007 (Version 1)
Quarter: 2021Q3

REPORT INFORMATION
  Report Type: Spontaneous
  Country: TR (occurrence: TR)
  Receive Date: 20210819
  Receipt Date: 20210819
  Transmission Date: 20211014
  Serious: Yes (Other)
  Sender: FDA-Public Use
  Company Number: NVSC2021TR187412

PATIENT
  Age: 56 Year
  Sex: Male

DRUGS (1)
  1. SECUKINUMAB. [Suspect]
     Active Substance: SECUKINUMAB
     Indication: HIDRADENITIS
     Dosage: UNK
     Route: 065
     Dates: start: 202006

REACTIONS (2)
  - Product use in unapproved indication [Unknown]
  - Cutaneous vasculitis [Recovering/Resolving]
